FAERS Safety Report 8328789-X (Version None)
Quarter: 2012Q2

REPORT INFORMATION
  Report Type: 
  Country: None (occurrence: None)
  Receive Date: 20120502
  Receipt Date: 20120424
  Transmission Date: 20120825
  Serious: Yes (Hospitalization, Other)
  Sender: FDA-Public Use
  Company Number: IT-ELI_LILLY_AND_COMPANY-IT201204001910

PATIENT
  Sex: Female

DRUGS (10)
  1. ATORVASTATIN CALCIUM [Concomitant]
     Indication: BLOOD CHOLESTEROL INCREASED
     Dosage: UNK, UNKNOWN
     Route: 051
     Dates: start: 20100101
  2. METOPROLOL TARTRATE [Concomitant]
     Indication: ARRHYTHMIA
     Dosage: UNK, UNKNOWN
     Route: 051
     Dates: start: 20100101
  3. ASPIRIN [Concomitant]
     Indication: THROMBOSIS PROPHYLAXIS
     Dosage: UNK, UNKNOWN
     Route: 051
     Dates: start: 20100101
  4. LASIX [Concomitant]
     Indication: URINE OUTPUT DECREASED
     Dosage: UNK, UNKNOWN
     Dates: start: 20100101
  5. ALDACTONE [Concomitant]
     Indication: HYPOKALAEMIA
     Dosage: UNK, UNKNOWN
     Dates: start: 20100101
  6. ROCEPHIN [Concomitant]
     Indication: ANTIBIOTIC PROPHYLAXIS
     Dosage: UNK, UNKNOWN
     Route: 051
     Dates: start: 20120308
  7. EFFIENT [Suspect]
     Indication: ACUTE MYOCARDIAL INFARCTION
     Dosage: 60 MG, LOADING DOSE
     Route: 048
     Dates: start: 20120325
  8. EFFIENT [Suspect]
     Dosage: 10 MG, QD
     Route: 048
     Dates: end: 20120406
  9. RAMIPRIL [Concomitant]
     Indication: HYPERTENSION
     Dosage: UNK, UNKNOWN
     Dates: start: 20100101
  10. PANTOPRAZOLE SODIUM [Concomitant]
     Indication: REFLUX GASTRITIS
     Dosage: UNK, UNKNOWN
     Route: 051
     Dates: start: 20120308

REACTIONS (1)
  - ERYTHEMA [None]
